FAERS Safety Report 10005029 (Version 1)
Quarter: 2014Q1

REPORT INFORMATION
  Report Type: Report from Study
  Country: US (occurrence: US)
  Receive Date: 20140312
  Receipt Date: 20140312
  Transmission Date: 20141002
  Serious: Yes (Hospitalization)
  Sender: FDA-Public Use
  Company Number: PHEH2014US004497

PATIENT
  Sex: Female

DRUGS (17)
  1. GILENYA [Suspect]
     Indication: MULTIPLE SCLEROSIS
     Dosage: 0.5 MG, QD
     Route: 048
     Dates: start: 2012, end: 20140219
  2. MVI [Concomitant]
  3. AMLODIPINE BESYLATE [Concomitant]
  4. URSODIOL [Concomitant]
  5. BACLOFEN [Concomitant]
  6. IRON [Concomitant]
  7. VITAMIN C [Concomitant]
  8. VITAMIN B6 [Concomitant]
  9. VITAMIN D3 [Concomitant]
  10. OXYBUTYNIN [Concomitant]
  11. DOCUSATE SODIUM W/SENNOSIDE A+B [Concomitant]
  12. CRANBERRY//VACCINIUM MACROCARPON [Concomitant]
  13. OMEPRAZOLE [Concomitant]
  14. BENAZEPRIL [Concomitant]
  15. FERROUS SULFATE [Concomitant]
  16. BUPROPION HCL [Concomitant]
  17. MULTIVITAMIN                       /00097801/ [Concomitant]

REACTIONS (2)
  - Wound [Not Recovered/Not Resolved]
  - Urinary tract infection [Recovered/Resolved]
